FAERS Safety Report 8741861 (Version 2)
Quarter: 2012Q4

REPORT INFORMATION
  Report Type: 
  Country: US (occurrence: US)
  Receive Date: 20120824
  Receipt Date: 20120912
  Transmission Date: 20130627
  Serious: No
  Sender: FDA-Public Use
  Company Number: US-PFIZER INC-2012207175

PATIENT
  Sex: Female

DRUGS (4)
  1. PRISTIQ [Suspect]
     Dosage: UNK
  2. BUSPAR [Concomitant]
     Dosage: UNK
  3. METOPROLOL [Concomitant]
     Dosage: UNK
  4. SEROQUEL [Concomitant]
     Dosage: UNK

REACTIONS (1)
  - Dizziness [Unknown]
